FAERS Safety Report 6065300-0 (Version None)
Quarter: 2009Q1

REPORT INFORMATION
  Report Type: 
  Country: None (occurrence: None)
  Receive Date: 20090204
  Receipt Date: 20090129
  Transmission Date: 20090719
  Serious: Yes (Hospitalization, Other)
  Sender: FDA-Public Use
  Company Number: US-ELI_LILLY_AND_COMPANY-US200902000003

PATIENT
  Sex: Female
  Weight: 90.703 kg

DRUGS (5)
  1. ALIMTA [Suspect]
     Indication: LUNG ADENOCARCINOMA
     Dosage: 1000 MG, UNK
     Route: 042
     Dates: start: 20090116
  2. COUMADIN [Concomitant]
     Dosage: 3 MG, DAILY (1/D)
     Route: 048
  3. OXYCONTIN [Concomitant]
     Dosage: 20 MG, OTHER
     Route: 048
  4. VICODIN [Concomitant]
     Dosage: 1 D/F, AS NEEDED
  5. VICODIN [Concomitant]
     Dosage: 2 D/F, AS NEEDED

REACTIONS (8)
  - CARDIAC FAILURE CONGESTIVE [None]
  - DEHYDRATION [None]
  - LUNG INFILTRATION [None]
  - LYMPHADENOPATHY MEDIASTINAL [None]
  - MALIGNANT NEOPLASM PROGRESSION [None]
  - PANCYTOPENIA [None]
  - PULMONARY EMBOLISM [None]
  - RENAL FAILURE ACUTE [None]
